FAERS Safety Report 5886887-4 (Version None)
Quarter: 2008Q3

REPORT INFORMATION
  Report Type: 
  Country: None (occurrence: None)
  Receive Date: 20080917
  Receipt Date: 20080909
  Transmission Date: 20090109
  Serious: Yes (Hospitalization)
  Sender: FDA-Public Use
  Company Number: US-AMGEN-QUU274108

PATIENT
  Sex: Female

DRUGS (2)
  1. ENBREL [Suspect]
     Indication: PSORIATIC ARTHROPATHY
     Route: 058
     Dates: start: 20021101
  2. HUMIRA [Concomitant]
     Dates: start: 20070101, end: 20070301

REACTIONS (4)
  - FATIGUE [None]
  - INTERVERTEBRAL DISC DEGENERATION [None]
  - MYALGIA [None]
  - PAIN [None]
